FAERS Safety Report 6693591-1 (Version None)
Quarter: 2010Q2

REPORT INFORMATION
  Report Type: 
  Country: None (occurrence: None)
  Receive Date: 20100423
  Receipt Date: 20100304
  Transmission Date: 20101027
  Serious: No
  Sender: FDA-Public Use
  Company Number: 2009BI013421

PATIENT
  Age: 46 Year
  Sex: Male

DRUGS (1)
  1. TYSABRI [Suspect]
     Indication: MULTIPLE SCLEROSIS
     Route: 042
     Dates: start: 20090330

REACTIONS (12)
  - BALANCE DISORDER [None]
  - DIARRHOEA [None]
  - DRUG INEFFECTIVE [None]
  - FALL [None]
  - FORMICATION [None]
  - GAIT DISTURBANCE [None]
  - INCREASED TENDENCY TO BRUISE [None]
  - MICTURITION URGENCY [None]
  - MUSCLE SPASMS [None]
  - MUSCLE SPASTICITY [None]
  - NAUSEA [None]
  - WEIGHT DECREASED [None]
